FAERS Safety Report 6194529-6 (Version None)
Quarter: 2009Q2

REPORT INFORMATION
  Report Type: 
  Country: None (occurrence: None)
  Receive Date: 20090519
  Receipt Date: 20090513
  Transmission Date: 20091009
  Serious: Yes (Other)
  Sender: FDA-Public Use
  Company Number: US-JNJFOC-20061004858

PATIENT
  Sex: Male
  Weight: 66.68 kg

DRUGS (4)
  1. RISPERDAL [Suspect]
     Indication: SCHIZOPHRENIA
  2. RISPERDAL [Suspect]
     Indication: DEPRESSION
  3. RISPERDAL [Suspect]
     Indication: ANXIETY
  4. NEFAZODONE HCL [Concomitant]

REACTIONS (5)
  - DIABETES MELLITUS [None]
  - INTENTIONAL OVERDOSE [None]
  - PANCREATITIS [None]
  - SUICIDE ATTEMPT [None]
  - TARDIVE DYSKINESIA [None]
